FAERS Safety Report 6640342-2 (Version None)
Quarter: 2010Q1

REPORT INFORMATION
  Report Type: 
  Country: None (occurrence: None)
  Receive Date: 20100302
  Receipt Date: 20100114
  Transmission Date: 20100710
  Serious: Yes (Hospitalization, Other)
  Sender: FDA-Public Use
  Company Number: 2009300251

PATIENT
  Age: 75 Year
  Sex: Male
  Weight: 127 kg

DRUGS (5)
  1. TOVIAZ [Suspect]
     Indication: URGE INCONTINENCE
     Dosage: 8 MG, 1X/DAY; 4 MG
  2. DOXAZOSIN MESYLATE [Concomitant]
  3. AMLODIPINE [Concomitant]
  4. ATENOLOL [Concomitant]
  5. ZANTAC 150 [Concomitant]

REACTIONS (2)
  - THERAPEUTIC RESPONSE DECREASED [None]
  - URINARY RETENTION [None]
